FAERS Safety Report 10748625 (Version 1)
Quarter: 2015Q1

REPORT INFORMATION
  Report Type: Report from Study
  Country: US (occurrence: None)
  Receive Date: 20150120
  Receipt Date: 20150120
  Transmission Date: 20150721
  Serious: Yes (Other)
  Sender: FDA-Public Use
  Company Number: AEGR000922

PATIENT
  Age: 53 Year
  Sex: Female
  Weight: 98.9 kg

DRUGS (20)
  1. LORATADINE. [Concomitant]
     Active Substance: LORATADINE
  2. PANTOPRAZOLE SODIUM [Concomitant]
     Active Substance: PANTOPRAZOLE SODIUM
  3. VASCEPA (ICOSAPENT) [Concomitant]
  4. JUXTAPID [Suspect]
     Active Substance: LOMITAPIDE MESYLATE
     Indication: TYPE IIA HYPERLIPIDAEMIA
     Route: 048
     Dates: start: 20140109, end: 20140310
  5. FLUTICASONE PROPIONATE. [Concomitant]
     Active Substance: FLUTICASONE PROPIONATE
  6. GABAPENTIN. [Concomitant]
     Active Substance: GABAPENTIN
  7. AMLODIPINE BESYLATE. [Concomitant]
     Active Substance: AMLODIPINE BESYLATE
  8. ASPIRIN. [Concomitant]
     Active Substance: ASPIRIN
  9. TIZANIDINE (TIZANIDINE) [Concomitant]
     Active Substance: TIZANIDINE
  10. ANDROGEL [Concomitant]
     Active Substance: TESTOSTERONE
  11. PROAIR HFA [Concomitant]
     Active Substance: ALBUTEROL SULFATE
  12. AFRIN (OXCYMETAZOLINE HYDROCHLORIDE) [Concomitant]
  13. CELEBREX [Concomitant]
     Active Substance: CELECOXIB
  14. JANUVIA [Concomitant]
     Active Substance: SITAGLIPTIN PHOSPHATE
  15. L-CARNITINE [Concomitant]
     Active Substance: CARNITINE
  16. NYSTATIN W/TRIAMCINOLONE [Concomitant]
  17. GLIMEPIRIDE. [Concomitant]
     Active Substance: GLIMEPIRIDE
  18. METAXALONE. [Concomitant]
     Active Substance: METAXALONE
  19. ZETIA [Concomitant]
     Active Substance: EZETIMIBE
  20. NIACIN (NICOTINIC ACID) [Concomitant]

REACTIONS (2)
  - Alanine aminotransferase increased [None]
  - Aspartate aminotransferase increased [None]

NARRATIVE: CASE EVENT DATE: 20140310
